FAERS Safety Report 8329678-7 (Version None)
Quarter: 2012Q2

REPORT INFORMATION
  Report Type: 
  Country: None (occurrence: None)
  Receive Date: 20120502
  Receipt Date: 20120425
  Transmission Date: 20120825
  Serious: Yes (Hospitalization)
  Sender: FDA-Public Use
  Company Number: US-GLAXOSMITHKLINE-A0966728A

PATIENT
  Age: 68 Year
  Sex: Female

DRUGS (3)
  1. VENTOLIN HFA [Suspect]
     Indication: CHRONIC OBSTRUCTIVE PULMONARY DISEASE
     Dosage: 2PUFF SEE DOSAGE TEXT
     Route: 055
  2. LOPRESSOR [Concomitant]
  3. PLAVIX [Concomitant]

REACTIONS (2)
  - PNEUMONIA [None]
  - BLOOD DISORDER [None]
